FAERS Safety Report 7094068-4 (Version None)
Quarter: 2010Q4

REPORT INFORMATION
  Report Type: 
  Country: None (occurrence: None)
  Receive Date: 20101110
  Receipt Date: 20101105
  Transmission Date: 20110411
  Serious: Yes (Other)
  Sender: FDA-Public Use
  Company Number: US-GILEAD-2010-0032907

PATIENT
  Sex: Male

DRUGS (15)
  1. RANEXA [Suspect]
     Indication: PRODUCT USED FOR UNKNOWN INDICATION
     Route: 048
     Dates: start: 20100831
  2. RANEXA [Suspect]
     Route: 048
     Dates: start: 20070724
  3. RANEXA [Suspect]
     Route: 048
     Dates: start: 20061109
  4. AMIODARONE [Concomitant]
     Dates: start: 20080121
  5. AMIODARONE [Concomitant]
     Dates: start: 20060410, end: 20060911
  6. CARVEDILOL [Concomitant]
  7. DIGOXIN [Concomitant]
  8. WARFARIN [Concomitant]
  9. ENALAPRIL MALEATE [Concomitant]
  10. IMDUR [Concomitant]
  11. LASIX [Concomitant]
  12. SIMVASTATIN [Concomitant]
  13. OMEPRAZOLE [Concomitant]
  14. METFORMIN HCL [Concomitant]
  15. INSULIN [Concomitant]

REACTIONS (2)
  - DIZZINESS [None]
  - LOSS OF CONSCIOUSNESS [None]
